FAERS Safety Report 15035820 (Version 1)
Quarter: 2018Q2

REPORT INFORMATION
  Report Type: Spontaneous
  Country: US (occurrence: US)
  Receive Date: 20180620
  Receipt Date: 20180620
  Transmission Date: 20180711
  Serious: Yes (Hospitalization, Other)
  Sender: FDA-Public Use
  Company Number: US-JNJFOC-20180622842

PATIENT
  Age: 75 Year
  Sex: Female
  Weight: 64.41 kg

DRUGS (1)
  1. INVOKANA [Suspect]
     Active Substance: CANAGLIFLOZIN
     Indication: TYPE 2 DIABETES MELLITUS
     Route: 048
     Dates: start: 20141008

REACTIONS (4)
  - Toe amputation [Unknown]
  - Acute kidney injury [Unknown]
  - Diabetic ketoacidosis [Unknown]
  - Osteomyelitis acute [Unknown]

NARRATIVE: CASE EVENT DATE: 20160718
